FAERS Safety Report 14918545 (Version 1)
Quarter: 2018Q2

REPORT INFORMATION
  Report Type: Spontaneous
  Country: US (occurrence: US)
  Receive Date: 20180521
  Receipt Date: 20180521
  Transmission Date: 20180711
  Serious: No
  Sender: FDA-Public Use
  Company Number: US-ASTRAZENECA-2018SE56296

PATIENT
  Age: 855 Month
  Sex: Female
  Weight: 77.6 kg

DRUGS (6)
  1. IRESSA [Suspect]
     Active Substance: GEFITINIB
     Indication: LUNG NEOPLASM MALIGNANT
     Route: 048
     Dates: start: 201705
  2. FASLODEX [Suspect]
     Active Substance: FULVESTRANT
     Indication: BONE DENSITY ABNORMAL
     Route: 030
     Dates: start: 201706
  3. NOLVADEX [Suspect]
     Active Substance: TAMOXIFEN CITRATE
     Route: 048
     Dates: start: 1993
  4. TYLENOL [Concomitant]
     Active Substance: ACETAMINOPHEN
     Indication: OSTEOARTHRITIS
     Dosage: 500.0MG AS REQUIRED
     Route: 048
     Dates: start: 1992
  5. ALTEPLASE. [Concomitant]
     Active Substance: ALTEPLASE
     Indication: OSTEOARTHRITIS
     Dosage: 2.0MG AS REQUIRED
  6. IRESSA [Suspect]
     Active Substance: GEFITINIB
     Indication: LUNG NEOPLASM MALIGNANT
     Dosage: 250 MG, ONE WEEK ON AND ONE WEEK OFF
     Route: 048
     Dates: start: 201705

REACTIONS (11)
  - Dry eye [Not Recovered/Not Resolved]
  - Off label use [Not Recovered/Not Resolved]
  - Rash [Not Recovered/Not Resolved]
  - Hepatocellular injury [Unknown]
  - Alanine aminotransferase increased [Unknown]
  - Product use in unapproved indication [Not Recovered/Not Resolved]
  - Vision blurred [Not Recovered/Not Resolved]
  - Hair disorder [Not Recovered/Not Resolved]
  - Acne [Not Recovered/Not Resolved]
  - Alopecia [Not Recovered/Not Resolved]
  - Aspartate aminotransferase increased [Unknown]

NARRATIVE: CASE EVENT DATE: 201705
